FAERS Safety Report 13765361 (Version 2)
Quarter: 2017Q3

REPORT INFORMATION
  Report Type: Spontaneous
  Country: US (occurrence: US)
  Receive Date: 20170718
  Receipt Date: 20170803
  Transmission Date: 20171127
  Serious: No
  Sender: FDA-Public Use
  Company Number: US-TEVA-788606USA

PATIENT
  Age: 94 Year
  Sex: Female
  Weight: 44.95 kg

DRUGS (2)
  1. QVAR [Suspect]
     Active Substance: BECLOMETHASONE DIPROPIONATE
     Indication: ASTHMA
     Dosage: 1 PUFF IN THE MORNING AND 1 PUFF IN THE EVENING
     Route: 065
     Dates: start: 2014
  2. SYNTHROID [Concomitant]
     Active Substance: LEVOTHYROXINE SODIUM

REACTIONS (2)
  - Cataract [Not Recovered/Not Resolved]
  - Wound [Recovered/Resolved]

NARRATIVE: CASE EVENT DATE: 2014
